FAERS Safety Report 15390822 (Version 1)
Quarter: 2018Q3

REPORT INFORMATION
  Report Type: Spontaneous
  Country: US (occurrence: US)
  Receive Date: 20180910
  Receipt Date: 20180910
  Transmission Date: 20181010
  Serious: Yes (Disabling)
  Sender: FDA-Public Use
  Company Number: None

PATIENT
  Age: 49 Year
  Sex: Female
  Weight: 70.65 kg

DRUGS (1)
  1. SERMORELIN [Suspect]
     Active Substance: SERMORELIN
     Indication: WEIGHT DECREASED
     Dosage: ?          QUANTITY:.2 INJECTION(S);?
     Route: 058
     Dates: start: 20180823, end: 20180827

REACTIONS (2)
  - Dizziness [None]
  - Nausea [None]

NARRATIVE: CASE EVENT DATE: 20180827
